FAERS Safety Report 19078108 (Version 2)
Quarter: 2021Q2

REPORT INFORMATION
  Report Type: Spontaneous
  Country: AU (occurrence: AU)
  Receive Date: 20210331
  Receipt Date: 20210405
  Transmission Date: 20210717
  Serious: No
  Sender: FDA-Public Use
  Company Number: AU-PFIZER INC-2021334530

PATIENT
  Age: 21 Year
  Sex: Female
  Weight: 43 kg

DRUGS (13)
  1. TOLAZOLINE [Suspect]
     Active Substance: TOLAZOLINE
     Indication: PULMONARY ARTERIAL HYPERTENSION
     Dosage: 0.5 MG/KG
  2. BUPIVACAINE HCL [Suspect]
     Active Substance: BUPIVACAINE HYDROCHLORIDE
     Indication: PULMONARY ARTERIAL HYPERTENSION
     Dosage: 8 ML
  3. POTASSIUM CHLORIDE. [Suspect]
     Active Substance: POTASSIUM CHLORIDE
     Indication: PULMONARY ARTERIAL HYPERTENSION
     Dosage: UNK
  4. SODIUM NITROPRUSSIDE. [Suspect]
     Active Substance: SODIUM NITROPRUSSIDE
     Indication: PULMONARY ARTERIAL HYPERTENSION
     Dosage: UNK
  5. PETHIDINE [Suspect]
     Active Substance: MEPERIDINE
     Indication: PULMONARY ARTERIAL HYPERTENSION
     Dosage: 40 MG
     Route: 040
  6. CELESTONE [Suspect]
     Active Substance: BETAMETHASONE
     Indication: PULMONARY ARTERIAL HYPERTENSION
     Dosage: UNK
  7. VERAPAMIL [Suspect]
     Active Substance: VERAPAMIL HYDROCHLORIDE
     Indication: PULMONARY ARTERIAL HYPERTENSION
     Dosage: UNK
  8. MAGNESIUM TRISILICATE [Suspect]
     Active Substance: MAGNESIUM TRISILICATE
     Indication: PULMONARY ARTERIAL HYPERTENSION
     Dosage: 20 ML
  9. DIAZEPAM. [Suspect]
     Active Substance: DIAZEPAM
     Indication: PULMONARY ARTERIAL HYPERTENSION
     Dosage: 20 MG
     Route: 040
  10. DIGOXIN. [Suspect]
     Active Substance: DIGOXIN
     Indication: PULMONARY ARTERIAL HYPERTENSION
     Dosage: UNK
  11. FUROSEMIDE. [Suspect]
     Active Substance: FUROSEMIDE
     Indication: PULMONARY ARTERIAL HYPERTENSION
     Dosage: UNK
  12. DIAZEPAM. [Suspect]
     Active Substance: DIAZEPAM
     Dosage: 40 MG
  13. CIMETIDINE [Suspect]
     Active Substance: CIMETIDINE
     Indication: PULMONARY ARTERIAL HYPERTENSION
     Dosage: 400 MG
     Route: 048

REACTIONS (1)
  - Maternal exposure during pregnancy [Unknown]
